FAERS Safety Report 7529945-0 (Version None)
Quarter: 2011Q2

REPORT INFORMATION
  Report Type: 
  Country: None (occurrence: None)
  Receive Date: 20110607
  Receipt Date: 20110606
  Transmission Date: 20111010
  Serious: Yes (Hospitalization)
  Sender: FDA-Public Use
  Company Number: GB-AMGEN-KDC443047

PATIENT
  Age: 77 Year
  Sex: Female

DRUGS (16)
  1. LOPERAMIDE [Concomitant]
     Dosage: UNK UNK, UNK
     Dates: start: 20100723
  2. EPIRUBICIN [Concomitant]
     Dosage: UNK UNK, UNK
     Dates: start: 20100404, end: 20100918
  3. CYCLIZINE [Concomitant]
     Dosage: 50 MG, PRN
     Dates: start: 20100720
  4. FLUCONAZOLE [Concomitant]
     Dosage: 50 MG, UNK
     Dates: start: 20100723
  5. ONDANSETRON [Concomitant]
     Dosage: 8 MG, UNK
     Route: 042
     Dates: start: 20100707
  6. METOCLOPRAMIDE HYDROCHLORIDE [Concomitant]
     Dosage: 10 MG, PRN
     Dates: start: 20100707
  7. CAPECITABINE [Concomitant]
     Dosage: UNK UNK, UNK
     Dates: start: 20100707, end: 20100918
  8. LEVOTHYROXINE SODIUM [Concomitant]
     Dosage: 75 A?G, QD
     Dates: start: 19830101
  9. LANSOPRAZOLE [Concomitant]
     Dosage: 30 MG, QD
     Dates: start: 20100628
  10. ACETAMINOPHEN [Concomitant]
     Dosage: 1 G, PRN
     Dates: start: 20100728
  11. ENSURE [Concomitant]
     Dosage: UNK UNK, UNK
     Dates: start: 20100628
  12. SUCRALFATE [Concomitant]
     Dosage: 15 ML, QID
     Dates: start: 20100728
  13. PANITUMUMAB [Suspect]
     Indication: GASTROOESOPHAGEAL CANCER
     Dosage: UNK
     Dates: start: 20100707, end: 20100918
  14. OXALIPLATIN [Concomitant]
     Dosage: UNK UNK, UNK
     Dates: start: 20100707, end: 20100918
  15. DEXAMETHASONE [Concomitant]
     Dosage: UNK UNK, UNK
     Dates: start: 20100707
  16. DIPROBASE [Concomitant]
     Dosage: UNK UNK, UNK
     Dates: start: 20100728

REACTIONS (6)
  - NEUTROPENIA [None]
  - GASTRIC CANCER [None]
  - NEOPLASM PROGRESSION [None]
  - DIARRHOEA [None]
  - BLOOD MAGNESIUM DECREASED [None]
  - HYPOKALAEMIA [None]
